FAERS Safety Report 5412908-9 (Version None)
Quarter: 2007Q3

REPORT INFORMATION
  Report Type: 
  Country: None (occurrence: None)
  Receive Date: 20070813
  Receipt Date: 20070803
  Transmission Date: 20080115
  Serious: Yes (Hospitalization, Disabling)
  Sender: FDA-Public Use
  Company Number: DK-PFIZER INC-2006016247

PATIENT
  Sex: Female
  Weight: 98 kg

DRUGS (2)
  1. LIPITOR [Suspect]
     Indication: DIABETES MELLITUS
     Route: 048
     Dates: start: 20050716, end: 20051007
  2. NEXIUM [Concomitant]

REACTIONS (8)
  - BALANCE DISORDER [None]
  - COMMUNICATION DISORDER [None]
  - DIPLOPIA [None]
  - DIZZINESS [None]
  - DYSKINESIA [None]
  - FATIGUE [None]
  - NAUSEA [None]
  - SENSORY DISTURBANCE [None]
